FAERS Safety Report 7624190-2 (Version None)
Quarter: 2011Q3

REPORT INFORMATION
  Report Type: 
  Country: None (occurrence: None)
  Receive Date: 20110720
  Receipt Date: 20110720
  Transmission Date: 20111222
  Serious: Yes (Hospitalization)
  Sender: FDA-Public Use
  Company Number: None

PATIENT
  Age: 50 Year
  Sex: Male
  Weight: 61.234 kg

DRUGS (2)
  1. AMITRIPTYLINE HCL [Interacting]
  2. DALMANE [Suspect]
     Indication: SLEEP DISORDER
     Dates: start: 20110528, end: 20110729

REACTIONS (9)
  - ABDOMINAL PAIN LOWER [None]
  - DYSPHAGIA [None]
  - THERAPEUTIC RESPONSE DECREASED [None]
  - PAIN [None]
  - DRY MOUTH [None]
  - FLATULENCE [None]
  - THROAT TIGHTNESS [None]
  - FREQUENT BOWEL MOVEMENTS [None]
  - WEIGHT GAIN POOR [None]
